FAERS Safety Report 9115114 (Version 1)
Quarter: 2013Q1

REPORT INFORMATION
  Report Type: Spontaneous
  Country: US (occurrence: US)
  Receive Date: 20130225
  Receipt Date: 20130225
  Transmission Date: 20140127
  Serious: Yes (Disabling)
  Sender: FDA-Public Use
  Company Number: US-COVIDIEN/TYCO HEALTHCARE/MALLINCKRODT-T201204168

PATIENT
  Age: 50 Year
  Sex: Male

DRUGS (1)
  1. GABLOFEN [Suspect]
     Indication: MUSCLE SPASTICITY
     Dosage: 220 MCG/DAY
     Route: 037

REACTIONS (3)
  - Muscle spasticity [Unknown]
  - Withdrawal syndrome [Unknown]
  - Device failure [Unknown]
